FAERS Safety Report 5345176-7 (Version None)
Quarter: 2007Q2

REPORT INFORMATION
  Report Type: 
  Country: None (occurrence: None)
  Receive Date: 20070423
  Receipt Date: 20070207
  Transmission Date: 20071010
  Serious: Yes (Hospitalization)
  Sender: FDA-Public Use
  Company Number: 0605-298

PATIENT
  Age: 68 Year
  Sex: Female

DRUGS (2)
  1. ALBUTEROL SULATE [Suspect]
     Indication: ASTHMA
  2. LASIX [Concomitant]

REACTIONS (2)
  - HYPOKALAEMIA [None]
  - VENTRICULAR TACHYCARDIA [None]
